FAERS Safety Report 13383170 (Version 3)
Quarter: 2019Q3

REPORT INFORMATION
  Report Type: Spontaneous
  Country: US (occurrence: US)
  Receive Date: 20170329
  Receipt Date: 20190705
  Transmission Date: 20191004
  Serious: Yes (Death, Hospitalization)
  Sender: FDA-Public Use
  Company Number: US-ELI_LILLY_AND_COMPANY-US201703010195

PATIENT
  Sex: Male

DRUGS (1)
  1. CIALIS [Suspect]
     Active Substance: TADALAFIL
     Indication: ERECTILE DYSFUNCTION
     Dosage: 20 MG, QOD
     Route: 048
     Dates: start: 20120401, end: 20130801

REACTIONS (2)
  - Respiratory arrest [Fatal]
  - Metastatic malignant melanoma [Fatal]

NARRATIVE: CASE EVENT DATE: 20130702
